FAERS Safety Report 17984481 (Version 11)
Quarter: 2021Q2

REPORT INFORMATION
  Report Type: Spontaneous
  Country: US (occurrence: US)
  Receive Date: 20200706
  Receipt Date: 20210423
  Transmission Date: 20210717
  Serious: Yes (Other)
  Sender: FDA-Public Use
  Company Number: US-TAKEDA-2020TUS029111

PATIENT
  Age: 62 Year
  Sex: Female
  Weight: 66.67 kg

DRUGS (6)
  1. NINLARO [Suspect]
     Active Substance: IXAZOMIB CITRATE
     Dosage: 4 MILLIGRAM
     Route: 048
     Dates: start: 20200501
  2. REVLIMID [Suspect]
     Active Substance: LENALIDOMIDE
     Indication: PLASMA CELL MYELOMA
     Dosage: 10 MILLIGRAM, QD
     Route: 065
     Dates: start: 20200401
  3. NINLARO [Suspect]
     Active Substance: IXAZOMIB CITRATE
     Indication: PLASMA CELL MYELOMA
     Dosage: 4 MILLIGRAM
     Route: 048
     Dates: start: 20200424
  4. NINLARO [Suspect]
     Active Substance: IXAZOMIB CITRATE
     Dosage: 4 MILLIGRAM
     Route: 048
     Dates: start: 202007
  5. NINLARO [Suspect]
     Active Substance: IXAZOMIB CITRATE
     Dosage: 4 MILLIGRAM
     Route: 048
     Dates: start: 202007
  6. REVLIMID [Suspect]
     Active Substance: LENALIDOMIDE
     Dosage: 10 MILLIGRAM
     Route: 048
     Dates: start: 20200715, end: 20200728

REACTIONS (32)
  - Eye infection [Unknown]
  - Dyspnoea [Unknown]
  - Hypoaesthesia [Unknown]
  - Diarrhoea [Unknown]
  - Oropharyngeal pain [Unknown]
  - Fatigue [Unknown]
  - Back pain [Unknown]
  - Neuralgia [Unknown]
  - Urticaria [Recovered/Resolved]
  - Eye swelling [Unknown]
  - Dizziness [Unknown]
  - Nausea [Unknown]
  - Blood glucose increased [Unknown]
  - Acne [Unknown]
  - Vision blurred [Unknown]
  - Hyperhidrosis [Unknown]
  - Eye discharge [Unknown]
  - Eye pruritus [Unknown]
  - Abdominal pain upper [Unknown]
  - Gastrooesophageal reflux disease [Unknown]
  - Pain in extremity [Unknown]
  - Pruritus [Unknown]
  - Rash [Unknown]
  - Lip swelling [Unknown]
  - Headache [Unknown]
  - Swelling of eyelid [Unknown]
  - Ocular hyperaemia [Unknown]
  - Neuropathy peripheral [Unknown]
  - Chest pain [Unknown]
  - Lacrimation increased [Unknown]
  - Asthenia [Unknown]
  - Off label use [Unknown]

NARRATIVE: CASE EVENT DATE: 20200721
